FAERS Safety Report 5918563-3 (Version None)
Quarter: 2008Q4

REPORT INFORMATION
  Report Type: 
  Country: None (occurrence: None)
  Receive Date: 20081014
  Receipt Date: 20081014
  Transmission Date: 20090506
  Serious: Yes (Hospitalization)
  Sender: FDA-Public Use
  Company Number: None

PATIENT
  Sex: Female
  Weight: 99.7913 kg

DRUGS (9)
  1. HUMIRA [Suspect]
     Indication: CROHN'S DISEASE
     Dosage: 40MG QOW SQ
     Route: 058
     Dates: start: 20080601
  2. COUMADIN [Concomitant]
  3. IRON [Concomitant]
  4. PANTASA [Concomitant]
  5. IMURAN [Concomitant]
  6. METFORMIN HYDROCHLORIDE [Concomitant]
  7. AVAPRO [Concomitant]
  8. ATENOLOL [Concomitant]
  9. LYRICA [Concomitant]

REACTIONS (3)
  - MUSCULAR WEAKNESS [None]
  - PULMONARY EMBOLISM [None]
  - THROMBOSIS [None]
